FAERS Safety Report 6334424-2 (Version None)
Quarter: 2009Q3

REPORT INFORMATION
  Report Type: 
  Country: None (occurrence: None)
  Receive Date: 20090831
  Receipt Date: 20090819
  Transmission Date: 20100115
  Serious: Yes (Disabling)
  Sender: FDA-Public Use
  Company Number: GB-RANBAXY-2009RR-26634

PATIENT
  Age: 65 Year
  Sex: Female
  Weight: 92 kg

DRUGS (14)
  1. SIMVASTATIN [Suspect]
  2. SITAGLIPTIN [Suspect]
     Indication: DIABETES MELLITUS
     Dosage: 100 MG, UNK
     Route: 048
     Dates: start: 20080812, end: 20090518
  3. ASPIRIN [Concomitant]
     Dosage: 75 MG, QD
     Route: 048
  4. BENDROFLUMETHIAZIDE [Concomitant]
     Dosage: 2.5 MG, QD
     Route: 048
  5. BUPRENORPHINE HCL [Concomitant]
     Dosage: 10 UG, Q1H
     Route: 062
  6. DIPYRIDAMOLE [Concomitant]
     Dosage: 200 MG, BID
     Route: 048
  7. ENALAPRIL MALEATE [Concomitant]
     Dosage: 10 MG, QD
     Route: 048
  8. LACRI-LUBE [Concomitant]
     Route: 047
  9. LANTUS [Concomitant]
  10. METFORMIN HYDROCHLORIDE [Concomitant]
     Indication: DIABETES MELLITUS
     Dosage: 500 MG, TID
     Route: 048
  11. OXYTETRACYCLINE [Concomitant]
     Dosage: 250 MG, QD
     Route: 048
  12. PARACETAMOL [Concomitant]
     Dosage: 1000 MG, QID
     Route: 048
  13. PRAVASTATIN [Concomitant]
     Indication: HYPERCHOLESTEROLAEMIA
     Dosage: 20 MG, QD
     Route: 048
  14. SNO TEARS [Concomitant]
     Route: 047

REACTIONS (10)
  - ARTHRALGIA [None]
  - INTRAOCULAR PRESSURE DECREASED [None]
  - LACRIMATION DECREASED [None]
  - MALAISE [None]
  - MEIBOMIANITIS [None]
  - MYALGIA [None]
  - NAUSEA [None]
  - RETINAL EXUDATES [None]
  - RETINAL HAEMORRHAGE [None]
  - VISION BLURRED [None]
